FAERS Safety Report 12689610 (Version 2)
Quarter: 2017Q1

REPORT INFORMATION
  Report Type: Report from Study
  Country: ZA (occurrence: ZA)
  Receive Date: 20160826
  Receipt Date: 20170223
  Transmission Date: 20170428
  Serious: Yes (Other)
  Sender: FDA-Public Use
  Company Number: ZA-ROCHE-1747734

PATIENT
  Age: 74 Year
  Sex: Male

DRUGS (8)
  1. LUCENTIS [Suspect]
     Active Substance: RANIBIZUMAB
     Dosage: CYCLE 2?LEFT EYE
     Route: 050
     Dates: start: 20160310
  2. LUCENTIS [Suspect]
     Active Substance: RANIBIZUMAB
     Dosage: CYCLE 2?LEFT EYE
     Route: 050
     Dates: start: 20160524
  3. LUCENTIS [Suspect]
     Active Substance: RANIBIZUMAB
     Dosage: CYCLE 3
     Route: 050
     Dates: start: 20160811
  4. LUCENTIS [Suspect]
     Active Substance: RANIBIZUMAB
     Dosage: CYCLE 2?LEFT EYE
     Route: 050
     Dates: start: 20160628, end: 20160628
  5. LUCENTIS [Suspect]
     Active Substance: RANIBIZUMAB
     Indication: NEOVASCULAR AGE-RELATED MACULAR DEGENERATION
     Dosage: IN LEFT EYE
     Route: 050
     Dates: start: 20151203
  6. LUCENTIS [Suspect]
     Active Substance: RANIBIZUMAB
     Dosage: CYCLE 2?LEFT EYE
     Route: 050
     Dates: start: 20160111
  7. LUCENTIS [Suspect]
     Active Substance: RANIBIZUMAB
     Dosage: CYCLE 2?LEFT EYE
     Route: 050
     Dates: start: 20160412
  8. LUCENTIS [Suspect]
     Active Substance: RANIBIZUMAB
     Dosage: UNK
     Route: 065
     Dates: start: 20170112

REACTIONS (7)
  - Retinal oedema [Recovering/Resolving]
  - Blepharitis [Recovered/Resolved]
  - Detachment of retinal pigment epithelium [Unknown]
  - Macular degeneration [Unknown]
  - Dacryocanaliculitis [Unknown]
  - Retinal thickening [Unknown]
  - Choroidal neovascularisation [Unknown]

NARRATIVE: CASE EVENT DATE: 20160628
